FAERS Safety Report 4421925-7 (Version None)
Quarter: 2004Q3

REPORT INFORMATION
  Report Type: 
  Country: None (occurrence: None)
  Receive Date: 20040806
  Receipt Date: 20040806
  Transmission Date: 20050211
  Serious: Yes (Hospitalization)
  Sender: FDA-Public Use
  Company Number: None

PATIENT
  Age: 49 Year
  Sex: Female

DRUGS (1)
  1. LEXAPRO [Suspect]
     Dosage: DAILY ORAL
     Route: 048
     Dates: start: 20040416, end: 20040416

REACTIONS (2)
  - HYPOTENSION [None]
  - SYNCOPE [None]
